FAERS Safety Report 9737030 (Version 2)
Quarter: 2013Q4

REPORT INFORMATION
  Report Type: Spontaneous
  Country: US (occurrence: US)
  Receive Date: 20131206
  Receipt Date: 20131206
  Transmission Date: 20140711
  Serious: No
  Sender: FDA-Public Use
  Company Number: US-GILEAD-2009-0023753

PATIENT
  Sex: Female
  Weight: 65.77 kg

DRUGS (16)
  1. LETAIRIS [Suspect]
     Indication: PULMONARY ARTERIAL HYPERTENSION
     Route: 048
     Dates: start: 20090314
  2. REVATIO [Concomitant]
  3. COUMADIN [Concomitant]
  4. BUMEX [Concomitant]
  5. ALDACTONE [Concomitant]
  6. ALBUTEROL [Concomitant]
  7. SPIRIVA [Concomitant]
  8. PLAQUENIL [Concomitant]
  9. SYNTHROID [Concomitant]
  10. ACTIGALL [Concomitant]
  11. OMNICEF [Concomitant]
  12. CALTRATE 600 [Concomitant]
  13. PREDNISONE [Concomitant]
  14. PILOCARPINE EYE DROPS [Concomitant]
  15. PREVACID [Concomitant]
  16. MULTIVITAMIN [Concomitant]

REACTIONS (2)
  - Liver function test abnormal [Unknown]
  - Oedema [Unknown]
